FAERS Safety Report 9592390 (Version 1)
Quarter: 2013Q4

REPORT INFORMATION
  Report Type: Spontaneous
  Country: US (occurrence: None)
  Receive Date: 20131003
  Receipt Date: 20131003
  Transmission Date: 20140711
  Serious: Yes (Hospitalization)
  Sender: FDA-Public Use
  Company Number: None

PATIENT
  Age: 36 Year
  Sex: Male
  Weight: 84 kg

DRUGS (1)
  1. ROCURONIUM [Suspect]
     Indication: ANAESTHESIA
     Dates: start: 20131001, end: 20131002

REACTIONS (2)
  - Hypotonia [None]
  - Condition aggravated [None]
